FAERS Safety Report 9508377 (Version 1)
Quarter: 2013Q3

REPORT INFORMATION
  Report Type: Spontaneous
  Country: US (occurrence: US)
  Receive Date: 20130909
  Receipt Date: 20130909
  Transmission Date: 20140515
  Serious: No
  Sender: FDA-Public Use
  Company Number: US-BAYER-2013-108265

PATIENT
  Sex: Female
  Weight: 50.79 kg

DRUGS (7)
  1. BETASERON [Suspect]
     Indication: MULTIPLE SCLEROSIS
     Dosage: 3 MG, UNK
  2. ALPRAZOLAM [Concomitant]
  3. LEXAPRO [Concomitant]
  4. LEVEMIR [Concomitant]
  5. HUMULIN R [Concomitant]
  6. DHEA [Concomitant]
  7. MULTIVITAMIN [Concomitant]

REACTIONS (1)
  - Influenza like illness [Unknown]
